FAERS Safety Report 6013984-5 (Version None)
Quarter: 2008Q4

REPORT INFORMATION
  Report Type: 
  Country: None (occurrence: None)
  Receive Date: 20081219
  Receipt Date: 20081118
  Transmission Date: 20090506
  Serious: No
  Sender: FDA-Public Use
  Company Number: A0757035A

PATIENT
  Age: 69 Year
  Sex: Female

DRUGS (10)
  1. AVANDARYL [Suspect]
     Route: 048
     Dates: start: 20060101, end: 20081015
  2. METFORMIN HCL [Concomitant]
  3. ATENOLOL [Concomitant]
  4. OMEPRAZOLE [Concomitant]
  5. GLIMEPIRIDE [Concomitant]
  6. HYDROCHLOROTHIAZIDE [Concomitant]
  7. CRESTOR [Concomitant]
  8. HYZAAR [Concomitant]
  9. LANTUS [Concomitant]
  10. EVISTA [Concomitant]

REACTIONS (3)
  - DYSPNOEA [None]
  - OEDEMA PERIPHERAL [None]
  - SWELLING FACE [None]
